FAERS Safety Report 9581492 (Version 2)
Quarter: 2013Q4

REPORT INFORMATION
  Report Type: Spontaneous
  Country: DE (occurrence: DE)
  Receive Date: 20131002
  Receipt Date: 20131112
  Transmission Date: 20140711
  Serious: Yes (Other)
  Sender: FDA-Public Use
  Company Number: PHHY2013DE109445

PATIENT
  Sex: Male

DRUGS (1)
  1. TEGRETAL RETARD [Suspect]
     Dosage: 600 MG IN THE MORNING AND 600 MG IN THE EVENING
     Route: 048

REACTIONS (4)
  - Epilepsy [Recovered/Resolved]
  - Dysphagia [Unknown]
  - Muscle spasms [Unknown]
  - Wrong technique in drug usage process [Unknown]
